FAERS Safety Report 18787253 (Version 2)
Quarter: 2021Q1

REPORT INFORMATION
  Report Type: Spontaneous
  Country: US (occurrence: US)
  Receive Date: 20210126
  Receipt Date: 20210310
  Transmission Date: 20210419
  Serious: Yes (Other)
  Sender: FDA-Public Use
  Company Number: US-ROCHE-2738151

PATIENT
  Sex: Male

DRUGS (16)
  1. COENZYME Q10 [Concomitant]
     Active Substance: DIETARY SUPPLEMENT\UBIDECARENONE
  2. MAGNESIUM [Concomitant]
     Active Substance: MAGNESIUM
  3. FISH OIL [Concomitant]
     Active Substance: FISH OIL
  4. ZINC. [Concomitant]
     Active Substance: ZINC
  5. CALTRATE [Concomitant]
     Active Substance: CALCIUM CARBONATE
     Dosage: 600?800 MG
  6. VITAMIN B12 [Concomitant]
     Active Substance: CYANOCOBALAMIN
  7. VITAMIN D3 [Concomitant]
     Active Substance: CHOLECALCIFEROL
  8. ESBRIET [Suspect]
     Active Substance: PIRFENIDONE
     Indication: IDIOPATHIC PULMONARY FIBROSIS
     Dosage: TAKE 3 TABLETS BY MOUTH THREE TIMES A DAY WITH MEALS
     Route: 048
  9. CAYENNE [Concomitant]
     Active Substance: CAPSICUM\HERBALS
  10. LANTUS [Concomitant]
     Active Substance: INSULIN GLARGINE
  11. LOSARTAN POTASSIUM. [Concomitant]
     Active Substance: LOSARTAN POTASSIUM
  12. NAC AL [Concomitant]
  13. SAW PALMETTO [Concomitant]
     Active Substance: HERBALS\SAW PALMETTO
  14. SUPER B COMPLEX [Concomitant]
     Active Substance: CYANOCOBALAMIN\DEXPANTHENOL\NIACINAMIDE\PYRIDOXINE HYDROCHLORIDE\RIBOFLAVIN 5^-PHOSPHATE SODIUM\THIAMINE HYDROCHLORIDE\VITAMIN B COMPLEX
  15. CALCIUM [Concomitant]
     Active Substance: CALCIUM
  16. NOVOLOG [Concomitant]
     Active Substance: INSULIN ASPART

REACTIONS (3)
  - Eructation [Unknown]
  - Diabetes mellitus [Unknown]
  - Decreased appetite [Not Recovered/Not Resolved]
